FAERS Safety Report 8963708 (Version 2)
Quarter: 2014Q2

REPORT INFORMATION
  Report Type: Spontaneous
  Country: JP (occurrence: JP)
  Receive Date: 20121214
  Receipt Date: 20131018
  Transmission Date: 20141212
  Serious: Yes (Death)
  Sender: FDA-Public Use
  Company Number: JP-PFIZER INC-2012268468

PATIENT
  Age: 55 Year
  Sex: Female
  Weight: 54 kg

DRUGS (6)
  1. ADRIACIN [Suspect]
     Indication: NON-HODGKIN^S LYMPHOMA
     Dosage: UNK
     Dates: start: 200209
  2. METHOTREXATE SODIUM [Suspect]
     Dosage: UNK
  3. RITUXIMAB [Suspect]
     Dosage: UNK
  4. CYCLOPHOSPHAMIDE [Suspect]
     Dosage: UNK
  5. PREDNISOLONE [Suspect]
     Dosage: UNK
     Dates: start: 200209
  6. VINCRISTINE SULFATE [Suspect]
     Dosage: UNK

REACTIONS (2)
  - Second primary malignancy [Fatal]
  - Small cell lung cancer [Fatal]
